FAERS Safety Report 12644634 (Version 2)
Quarter: 2017Q2

REPORT INFORMATION
  Report Type: Spontaneous
  Country: US (occurrence: US)
  Receive Date: 20160811
  Receipt Date: 20170515
  Transmission Date: 20170830
  Serious: No
  Sender: FDA-Public Use
  Company Number: US-ELI_LILLY_AND_COMPANY-US201607011303

PATIENT
  Sex: Male

DRUGS (2)
  1. TRULICITY [Suspect]
     Active Substance: DULAGLUTIDE
     Dosage: .75 MG, WEEKLY (1/W)
     Dates: start: 20160725
  2. TRULICITY [Suspect]
     Active Substance: DULAGLUTIDE
     Indication: TYPE 2 DIABETES MELLITUS
     Dosage: .75 MG, WEEKLY (1/W)
     Dates: start: 20160725

REACTIONS (6)
  - Dizziness [Recovering/Resolving]
  - Anxiety [Recovering/Resolving]
  - Injection site pain [Recovering/Resolving]
  - Skin discomfort [Not Recovered/Not Resolved]
  - Injection site haemorrhage [Recovering/Resolving]
  - Abdominal discomfort [Recovering/Resolving]
